FAERS Safety Report 8936916 (Version 1)
Quarter: 2012Q4

REPORT INFORMATION
  Report Type: 
  Country: DE (occurrence: DE)
  Receive Date: 20121130
  Receipt Date: 20121130
  Transmission Date: 20130627
  Serious: Yes (Death, Life-Threatening, Hospitalization)
  Sender: FDA-Public Use
  Company Number: DE-B.I. PHARMACEUTICALS,INC./RIDGEFIELD-2012-DE-02400DE

PATIENT
  Age: 88 Year
  Sex: Female
  Weight: 70 kg

DRUGS (16)
  1. PRADAXA [Suspect]
     Indication: ATRIAL FIBRILLATION
     Dosage: 220 mg
     Dates: start: 20120711, end: 20120904
  2. PRADAXA [Suspect]
     Indication: CEREBROVASCULAR ACCIDENT
  3. ASS 100 [Suspect]
     Indication: CORONARY ARTERY DISEASE
     Dosage: 100 mg
     Dates: end: 20120906
  4. ASS 100 [Suspect]
     Indication: VASCULAR GRAFT
  5. ASS 100 [Suspect]
     Indication: CEREBRAL INFARCTION
  6. OMEP [Concomitant]
     Dosage: 20 mg
     Dates: start: 20120711, end: 20120904
  7. OMEP [Concomitant]
     Dosage: 40 mg
     Dates: start: 20120904, end: 20120906
  8. RAMIPRIL [Concomitant]
     Dosage: 1.25 mg
     Dates: end: 20120618
  9. TORASEMID [Concomitant]
     Dosage: 30 mg
     Dates: end: 20120618
  10. BISO [Concomitant]
     Dosage: 2.5 mg
     Dates: end: 20120618
  11. INSPRA [Concomitant]
     Dosage: 25 mg
     Dates: end: 20120618
  12. ISDN [Concomitant]
     Dosage: 20 mg
     Dates: end: 20120717
  13. KALINOR [Concomitant]
     Dosage: 1 anz
     Dates: end: 20120618
  14. MOLSIHEXAL [Concomitant]
     Dosage: 16 mg
     Dates: end: 20120618
  15. CLEXANE [Concomitant]
     Dosage: 60 mg
     Route: 058
     Dates: start: 20120905
  16. METAMIZOL [Concomitant]
     Dosage: 15 anz
     Dates: end: 20120618

REACTIONS (6)
  - Cardiac failure [Fatal]
  - Acute myocardial infarction [Fatal]
  - Rectal haemorrhage [Recovered/Resolved]
  - Cardiac failure [Unknown]
  - Anaemia [Unknown]
  - Intestinal haemorrhage [Unknown]
